FAERS Safety Report 10227258 (Version 1)
Quarter: 2014Q2

REPORT INFORMATION
  Report Type: Spontaneous
  Country: US (occurrence: None)
  Receive Date: 20140609
  Receipt Date: 20140609
  Transmission Date: 20141212
  Serious: Yes (Other)
  Sender: FDA-Public Use
  Company Number: None

PATIENT
  Sex: Male

DRUGS (2)
  1. CAPECITABINE [Suspect]
     Indication: OESOPHAGEAL CARCINOMA
     Dosage: 500 MG BID.
     Route: 048
     Dates: start: 20140508, end: 20140527
  2. CAPECITABINE [Suspect]
     Indication: OESOPHAGEAL CARCINOMA
     Dosage: 150 MG BID.
     Route: 048
     Dates: start: 20140508, end: 20140527

REACTIONS (4)
  - Skin disorder [None]
  - Decreased appetite [None]
  - Nausea [None]
  - Disease progression [None]
